FAERS Safety Report 11568494 (Version 1)
Quarter: 2015Q3

REPORT INFORMATION
  Report Type: Spontaneous
  Country: BR (occurrence: BR)
  Receive Date: 20150929
  Receipt Date: 20150929
  Transmission Date: 20151125
  Serious: Yes (Other)
  Sender: FDA-Public Use
  Company Number: BR-ACCORD-033861

PATIENT
  Age: 56 Year
  Sex: Male
  Weight: 77.2 kg

DRUGS (6)
  1. RANITIDINE [Concomitant]
     Active Substance: RANITIDINE\RANITIDINE HYDROCHLORIDE
     Indication: PROPHYLAXIS
     Dosage: STRENGTH: 50 MG/ 2ML
     Route: 042
     Dates: start: 20150904, end: 20150904
  2. PACLITAXEL/PACLITAXEL LIPOSOME [Suspect]
     Active Substance: PACLITAXEL
     Indication: OROPHARYNGEAL CANCER
     Dosage: STRENGTH: 300 MG (175 MG/M2)?CHEMOTHERAPY WITH 3 CYCLES OF PACLITAXEL+CISPLATIN 75MG/M2 (140 MG)
     Route: 042
     Dates: start: 20150904, end: 20150904
  3. CISPLATIN. [Concomitant]
     Active Substance: CISPLATIN
     Indication: OROPHARYNGEAL CANCER
     Dosage: 75 MG/M2 (140 MG)
     Dates: start: 20150813
  4. DIFENIDRIN [Concomitant]
     Active Substance: DIPHENHYDRAMINE
     Indication: PROPHYLAXIS
     Dosage: SALINE 100 ML + DIFENIDRIN
     Dates: start: 20150904, end: 20150904
  5. DEXAMETHASONE. [Concomitant]
     Active Substance: DEXAMETHASONE
     Indication: PROPHYLAXIS
     Dosage: 10 MG 1 AMPOULE
     Route: 042
     Dates: start: 20150904, end: 20150904
  6. NAUSEDRON [Concomitant]
     Active Substance: ONDANSETRON HYDROCHLORIDE
     Indication: PROPHYLAXIS
     Dosage: 10 MG 1 AMPOULE
     Dates: start: 20150904, end: 20150904

REACTIONS (5)
  - Dyspnoea [Recovered/Resolved]
  - Off label use [Unknown]
  - Hypoxia [Recovered/Resolved]
  - Back pain [Recovered/Resolved]
  - Hyperaemia [Recovered/Resolved]

NARRATIVE: CASE EVENT DATE: 20150904
